FAERS Safety Report 8619985-2 (Version None)
Quarter: 2012Q3

REPORT INFORMATION
  Report Type: 
  Country: None (occurrence: None)
  Receive Date: 20120816
  Receipt Date: 20120816
  Transmission Date: 20120928
  Serious: Yes (Hospitalization)
  Sender: FDA-Public Use
  Company Number: None

PATIENT
  Age: 33 Year
  Sex: Female
  Weight: 122.4712 kg

DRUGS (1)
  1. CALDOLOR [Suspect]
     Indication: ABDOMINAL PAIN
     Dosage: 800MG ONCE IV
     Route: 042
     Dates: start: 20120703, end: 20120703

REACTIONS (2)
  - PAIN IN EXTREMITY [None]
  - CYANOSIS [None]
